FAERS Safety Report 19349444 (Version 2)
Quarter: 2021Q2

REPORT INFORMATION
  Report Type: Spontaneous
  Country: PL (occurrence: PL)
  Receive Date: 20210531
  Receipt Date: 20210630
  Transmission Date: 20210717
  Serious: Yes (Hospitalization)
  Sender: FDA-Public Use
  Company Number: PL-CELLTRION INC.-2021PL007014

PATIENT

DRUGS (1)
  1. RITUXIMAB (UNKNOWN) [Suspect]
     Active Substance: RITUXIMAB
     Indication: SUSAC^S SYNDROME
     Dosage: UNK
     Route: 065

REACTIONS (4)
  - Nephropathy [Unknown]
  - Product use in unapproved indication [Unknown]
  - Renal disorder [Unknown]
  - Off label use [Unknown]
